FAERS Safety Report 8507062-0 (Version None)
Quarter: 2012Q3

REPORT INFORMATION
  Report Type: 
  Country: None (occurrence: None)
  Receive Date: 20120712
  Receipt Date: 20120710
  Transmission Date: 20120928
  Serious: Yes (Hospitalization)
  Sender: FDA-Public Use
  Company Number: JP-BRACCO-005990

PATIENT
  Sex: Female
  Weight: 65 kg

DRUGS (5)
  1. OLOPATADINE HCL [Suspect]
     Indication: HYPERSENSITIVITY
     Route: 048
     Dates: start: 20120608, end: 20120609
  2. IOPAMIDOL-370 [Suspect]
     Indication: COMPUTERISED TOMOGRAM
     Route: 042
     Dates: start: 20120605, end: 20120605
  3. FAMOTIDINE [Suspect]
     Indication: HYPERSENSITIVITY
     Route: 042
     Dates: start: 20120608, end: 20120608
  4. POLARAMINE [Suspect]
     Indication: HYPERSENSITIVITY
     Route: 042
     Dates: start: 20120608, end: 20120608
  5. IOPAMIDOL-370 [Suspect]
     Indication: ADRENAL NEOPLASM
     Route: 042
     Dates: start: 20120605, end: 20120605

REACTIONS (3)
  - PYREXIA [None]
  - PLATELET COUNT DECREASED [None]
  - RASH GENERALISED [None]
